FAERS Safety Report 23547599 (Version 1)
Quarter: 2024Q1

REPORT INFORMATION
  Report Type: Spontaneous
  Country: US (occurrence: US)
  Receive Date: 20240221
  Receipt Date: 20240221
  Transmission Date: 20240409
  Serious: No
  Sender: FDA-Public Use
  Company Number: US-GSKCCFUS-Case-01940126_AE-107826

PATIENT
  Sex: Male

DRUGS (1)
  1. BREO ELLIPTA [Suspect]
     Active Substance: FLUTICASONE FUROATE\VILANTEROL TRIFENATATE
     Indication: Product used for unknown indication
     Dosage: 100/25
     Dates: start: 202402

REACTIONS (5)
  - Respiratory tract congestion [Unknown]
  - Nausea [Unknown]
  - Decreased appetite [Unknown]
  - Pain [Unknown]
  - Abdominal pain upper [Unknown]
